FAERS Safety Report 16297201 (Version 1)
Quarter: 2019Q2

REPORT INFORMATION
  Report Type: Spontaneous
  Country: US (occurrence: US)
  Receive Date: 20190510
  Receipt Date: 20190510
  Transmission Date: 20190711
  Serious: Yes (Other)
  Sender: FDA-Public Use
  Company Number: PHEH2019US019672

PATIENT
  Sex: Female

DRUGS (1)
  1. TASIGNA [Suspect]
     Active Substance: NILOTINIB
     Indication: CHRONIC MYELOID LEUKAEMIA
     Route: 065

REACTIONS (12)
  - Acute kidney injury [Unknown]
  - Anaemia [Unknown]
  - Coronary artery disease [Unknown]
  - Angina pectoris [Unknown]
  - Peripheral vascular disorder [Unknown]
  - Swelling [Unknown]
  - Vitamin D deficiency [Unknown]
  - Contusion [Unknown]
  - Dyspnoea [Unknown]
  - Osteoporosis [Unknown]
  - Urinary tract infection [Unknown]
  - Chest pain [Unknown]
